FAERS Safety Report 24162635 (Version 1)
Quarter: 2024Q3

REPORT INFORMATION
  Report Type: Spontaneous
  Country: CN (occurrence: CN)
  Receive Date: 20240801
  Receipt Date: 20240801
  Transmission Date: 20241017
  Serious: Yes (Hospitalization, Other)
  Sender: TERSERA THERAPEUTICS
  Company Number: CN-AstraZeneca-2024A170831

PATIENT

DRUGS (8)
  1. GOSERELIN [Suspect]
     Active Substance: GOSERELIN
     Indication: Breast cancer
     Dosage: 3.6 MILLIGRAM, QD
     Route: 058
     Dates: start: 20240511, end: 20240611
  2. GOSERELIN [Suspect]
     Active Substance: GOSERELIN
     Indication: Malignant pleural effusion
  3. ZOLADEX [Suspect]
     Active Substance: GOSERELIN ACETATE
     Indication: Breast cancer
     Dosage: UNK
     Route: 065
  4. ZOLADEX [Suspect]
     Active Substance: GOSERELIN ACETATE
     Indication: Malignant pleural effusion
  5. EXEMESTANE [Suspect]
     Active Substance: EXEMESTANE
     Indication: Breast cancer
     Dosage: 25 MILLIGRAM, QD
     Route: 048
     Dates: start: 20240611, end: 20240611
  6. EXEMESTANE [Suspect]
     Active Substance: EXEMESTANE
     Indication: Malignant pleural effusion
  7. DALPICICLIB [Concomitant]
     Active Substance: DALPICICLIB
     Indication: Breast cancer
     Dosage: 150 MILLIGRAM, QD
     Route: 065
     Dates: start: 20240611
  8. DALPICICLIB [Concomitant]
     Active Substance: DALPICICLIB
     Indication: Malignant pleural effusion

REACTIONS (1)
  - Myelosuppression [Unknown]

NARRATIVE: CASE EVENT DATE: 20240607
